FAERS Safety Report 18267193 (Version 1)
Quarter: 2020Q3

REPORT INFORMATION
  Report Type: Spontaneous
  Country: US (occurrence: US)
  Receive Date: 20200914
  Receipt Date: 20200914
  Transmission Date: 20201103
  Serious: Yes (Life-Threatening, Disabling, Other)
  Sender: FDA-Public Use
  Company Number: None

PATIENT
  Sex: Female
  Weight: 54 kg

DRUGS (8)
  1. CALCIUM [Concomitant]
     Active Substance: CALCIUM
  2. ZYRTEC [Concomitant]
     Active Substance: CETIRIZINE HYDROCHLORIDE
  3. MONTELUKAST [Suspect]
     Active Substance: MONTELUKAST SODIUM
     Route: 048
  4. FLUTICASONE PROPIONATE. [Concomitant]
     Active Substance: FLUTICASONE PROPIONATE
  5. CLONIDINE. [Concomitant]
     Active Substance: CLONIDINE
  6. COENZYME Q10 [Concomitant]
     Active Substance: DIETARY SUPPLEMENT\UBIDECARENONE
  7. FLUOXETINE [Concomitant]
     Active Substance: FLUOXETINE HYDROCHLORIDE
  8. OLOPATADINE HCL [Concomitant]
     Active Substance: OLOPATADINE HYDROCHLORIDE

REACTIONS (20)
  - Tourette^s disorder [None]
  - Nausea [None]
  - Agitation [None]
  - Fatigue [None]
  - Depression [None]
  - Nightmare [None]
  - Anger [None]
  - Completed suicide [None]
  - Disturbance in attention [None]
  - Hypoaesthesia [None]
  - Disorientation [None]
  - Irritability [None]
  - Paraesthesia [None]
  - Headache [None]
  - Dizziness [None]
  - Tic [None]
  - Anxiety [None]
  - Eczema [None]
  - Insomnia [None]
  - Restlessness [None]
